FAERS Safety Report 4318053-8 (Version None)
Quarter: 2004Q1

REPORT INFORMATION
  Report Type: 
  Country: None (occurrence: None)
  Receive Date: 20040317
  Receipt Date: 20040309
  Transmission Date: 20041129
  Serious: Yes (Disabling, Congenital Anomaly)
  Sender: FDA-Public Use
  Company Number: PHRM2004FR01109

PATIENT

DRUGS (4)
  1. TEGRETOL [Suspect]
     Indication: GRAND MAL CONVULSION
     Route: 064
  2. DEPAKENE [Suspect]
     Indication: GRAND MAL CONVULSION
     Route: 064
  3. AMPHETAMINE SULFATE AND PHENOBARBITAL CAP [Suspect]
     Indication: GRAND MAL CONVULSION
     Route: 064
  4. FOLIC ACID [Concomitant]
     Route: 064

REACTIONS (5)
  - AUTISM [None]
  - CONGENITAL FOOT MALFORMATION [None]
  - DRUG EXPOSURE DURING PREGNANCY [None]
  - FACIAL DYSMORPHISM [None]
  - MENTAL RETARDATION SEVERITY UNSPECIFIED [None]
